FAERS Safety Report 8907552 (Version 1)
Quarter: 2012Q4

REPORT INFORMATION
  Report Type: 
  Country: JP (occurrence: JP)
  Receive Date: 20121114
  Receipt Date: 20121114
  Transmission Date: 20130627
  Serious: Yes (Death)
  Sender: FDA-Public Use
  Company Number: JP-PFIZER INC-2012283521

PATIENT
  Age: 49 Year
  Sex: Female

DRUGS (1)
  1. SOLANAX [Suspect]
     Dosage: UNK
     Route: 048
     Dates: start: 200912, end: 200912

REACTIONS (2)
  - Drug-induced liver injury [Fatal]
  - Hepatic failure [Fatal]
